FAERS Safety Report 14653554 (Version 1)
Quarter: 2018Q1

REPORT INFORMATION
  Report Type: Report from Study
  Country: IN (occurrence: IN)
  Receive Date: 20180319
  Receipt Date: 20180319
  Transmission Date: 20180509
  Serious: Yes (Other)
  Sender: FDA-Public Use
  Company Number: IN-UCBSA-2018006247

PATIENT
  Sex: Male
  Weight: 8 kg

DRUGS (2)
  1. VALPARIN [Concomitant]
     Active Substance: VALPROATE SODIUM
     Indication: EPILEPSY
     Dosage: 3.5 ML, 2X/DAY (BID)
  2. LEVETIRACETAM. [Suspect]
     Active Substance: LEVETIRACETAM
     Indication: EPILEPSY
     Dosage: 2 ML, 2X/DAY (BID)
     Dates: start: 2017

REACTIONS (1)
  - Seizure [Not Recovered/Not Resolved]
